FAERS Safety Report 4576566-8 (Version None)
Quarter: 2005Q1

REPORT INFORMATION
  Report Type: 
  Country: None (occurrence: None)
  Receive Date: 20050119
  Receipt Date: 20040521
  Transmission Date: 20050727
  Serious: Yes (Hospitalization)
  Sender: FDA-Public Use
  Company Number: A03200401648

PATIENT
  Age: 68 Year
  Sex: Female
  Weight: 75.2971 kg

DRUGS (2)
  1. PLAVIX [Suspect]
     Indication: CATHETER PLACEMENT
     Dosage: 75 MG QD - ORAL
     Route: 048
     Dates: start: 20040510
  2. PLAVIX [Suspect]
     Indication: STENT PLACEMENT
     Dosage: 75 MG QD - ORAL
     Route: 048
     Dates: start: 20040510

REACTIONS (2)
  - BACK PAIN [None]
  - CHEST PAIN [None]
